FAERS Safety Report 9140774 (Version 1)
Quarter: 2013Q1

REPORT INFORMATION
  Report Type: Other
  Country: US (occurrence: US)
  Receive Date: 20130305
  Receipt Date: 20130305
  Transmission Date: 20140127
  Serious: Yes (Other)
  Sender: FDA-Public Use
  Company Number: US-ENDO PHARMACEUTICALS INC.-OPIR20120108

PATIENT
  Age: 16 Year
  Sex: Female

DRUGS (1)
  1. OPANA [Suspect]
     Indication: DRUG ABUSE
     Dosage: UNKNOWN
     Route: 065

REACTIONS (2)
  - Overdose [None]
  - Drug abuse [Not Recovered/Not Resolved]
